FAERS Safety Report 5398578-7 (Version None)
Quarter: 2007Q3

REPORT INFORMATION
  Report Type: 
  Country: None (occurrence: None)
  Receive Date: 20070726
  Receipt Date: 20061018
  Transmission Date: 20080115
  Serious: No
  Sender: FDA-Public Use
  Company Number: US-AMGEN-KDL197718

PATIENT
  Sex: Female
  Weight: 118.9 kg

DRUGS (5)
  1. PROCRIT [Suspect]
     Indication: ANAEMIA
     Route: 058
     Dates: start: 20061017
  2. AVANDIA [Concomitant]
  3. LEVOTHYROXINE SODIUM [Concomitant]
  4. TRICOR [Concomitant]
  5. SIMVASTATIN [Concomitant]

REACTIONS (4)
  - DYSGEUSIA [None]
  - HEADACHE [None]
  - NAUSEA [None]
  - STOMACH DISCOMFORT [None]
